FAERS Safety Report 7267591-7 (Version None)
Quarter: 2011Q1

REPORT INFORMATION
  Report Type: 
  Country: None (occurrence: None)
  Receive Date: 20110121
  Receipt Date: 20110114
  Transmission Date: 20110831
  Serious: Yes (Other)
  Sender: FDA-Public Use
  Company Number: 2011MA000331

PATIENT
  Sex: Female

DRUGS (1)
  1. METOCLOPRAMIDE TABLETS USP, 10 MG (PUREPAC) [Suspect]
     Dosage: PO
     Route: 048
     Dates: start: 20050201, end: 20091001

REACTIONS (9)
  - EXTRAPYRAMIDAL DISORDER [None]
  - CONDITION AGGRAVATED [None]
  - TARDIVE DYSKINESIA [None]
  - ESSENTIAL TREMOR [None]
  - ECONOMIC PROBLEM [None]
  - EMOTIONAL DISORDER [None]
  - TREMOR [None]
  - RESTLESS LEGS SYNDROME [None]
  - INCORRECT DRUG ADMINISTRATION DURATION [None]
